FAERS Safety Report 8279658 (Version 6)
Quarter: 2013Q1

REPORT INFORMATION
  Report Type: Spontaneous
  Country: IE (occurrence: IE)
  Receive Date: 20111208
  Receipt Date: 20130115
  Transmission Date: 20140127
  Serious: Yes (Hospitalization, Other)
  Sender: FDA-Public Use
  Company Number: IE-PFIZER INC-2011296996

PATIENT
  Age: 69 Year
  Sex: Male

DRUGS (2)
  1. LIPITOR [Suspect]
     Indication: ARTERIAL STENT INSERTION
     Dosage: 10 MG, UNK
     Dates: start: 2006, end: 2010
  2. ASPIRIN [Concomitant]
     Dosage: UNK

REACTIONS (20)
  - Pancreatitis [Unknown]
  - Muscle atrophy [Unknown]
  - Neuromyotonia [Recovering/Resolving]
  - Erectile dysfunction [Unknown]
  - Asthenia [Unknown]
  - Vision blurred [Unknown]
  - Myalgia [Unknown]
  - Insomnia [Unknown]
  - Vomiting [Unknown]
  - Chest discomfort [Unknown]
  - Neuralgia [Not Recovered/Not Resolved]
  - Tremor [Unknown]
  - Pain in extremity [Unknown]
  - Muscle twitching [Unknown]
  - Burning sensation [Unknown]
  - Paraesthesia [Unknown]
  - Constipation [Unknown]
  - Pruritus [Unknown]
  - Headache [Unknown]
  - Feeling cold [Unknown]
